FAERS Safety Report 7261316-7 (Version None)
Quarter: 2011Q1

REPORT INFORMATION
  Report Type: 
  Country: None (occurrence: None)
  Receive Date: 20110130
  Receipt Date: 20101011
  Transmission Date: 20110831
  Serious: No
  Sender: FDA-Public Use
  Company Number: US-ABBOTT-10P-163-0677250-00

PATIENT
  Sex: Male
  Weight: 81.72 kg

DRUGS (2)
  1. UNKNOWN TOPICAL [Concomitant]
     Indication: PRODUCT USED FOR UNKNOWN INDICATION
     Dosage: PRN
  2. HUMIRA [Suspect]
     Indication: PSORIASIS
     Dates: start: 20090827, end: 20100824

REACTIONS (1)
  - ANTINUCLEAR ANTIBODY POSITIVE [None]
